FAERS Safety Report 13776187 (Version 3)
Quarter: 2018Q1

REPORT INFORMATION
  Report Type: Spontaneous
  Country: US (occurrence: US)
  Receive Date: 20170721
  Receipt Date: 20180117
  Transmission Date: 20180508
  Serious: Yes (Disabling, Other)
  Sender: FDA-Public Use
  Company Number: US-009507513-1707USA004284

PATIENT
  Age: 47 Year
  Sex: Female
  Weight: 98.87 kg

DRUGS (14)
  1. INSULIN [Concomitant]
     Active Substance: INSULIN NOS
     Dosage: 20 G X 8 MM, MISCELLANEOUS AS DIRECTED USE WITH INSULIN PEN, BID
  2. PRINIVIL [Suspect]
     Active Substance: LISINOPRIL
     Indication: PROPHYLAXIS
     Dosage: 2.5 MG (1 TABLET), DAILY
     Route: 048
     Dates: start: 20160201, end: 20160211
  3. PRISTIQ EXTENDED-RELEASE [Concomitant]
     Active Substance: DESVENLAFAXINE SUCCINATE
     Dosage: 1 TABLET ONCE A DAY
     Route: 048
  4. LAMICTAL [Concomitant]
     Active Substance: LAMOTRIGINE
     Dosage: 1 TABLET ONCE A DAY
     Route: 048
  5. ZOLPIDEM TARTRATE. [Concomitant]
     Active Substance: ZOLPIDEM TARTRATE
     Dosage: 1 TABLET AT BEDTIME AS NEEDED
     Route: 048
  6. ALPRAZOLAM. [Concomitant]
     Active Substance: ALPRAZOLAM
     Dosage: 1 TABLET TWICE A DAY
     Route: 048
  7. NYSTATIN. [Concomitant]
     Active Substance: NYSTATIN
     Dosage: 1 APPLICATION TO AFFECTED AREA EXTERNALLY TWICE A DAY, STOP DATE 01-APR-2017
     Route: 061
  8. LIDOCAINE HYDROCHLORIDE. [Concomitant]
     Active Substance: LIDOCAINE HYDROCHLORIDE
     Dosage: 1 APPLICATION TO ULCERS EXTERNALLY TID PRN PAIN
     Route: 061
  9. VALACYCLOVIR HYDROCHLORIDE. [Concomitant]
     Active Substance: VALACYCLOVIR HYDROCHLORIDE
     Indication: PROPHYLAXIS AGAINST GASTROINTESTINAL ULCER
     Dosage: 1 TABLET TO PREVENT ULCERS EVERY 24 HRS, STOP DATE 01-MAY-2016
     Route: 048
  10. VYVANSE [Concomitant]
     Active Substance: LISDEXAMFETAMINE DIMESYLATE
     Dosage: 1 CAPSULE IN THE MORNING ONCE A DAY
     Route: 048
  11. TIGER BALM ARTHRITIS RUB [Concomitant]
     Active Substance: CAMPHOR (SYNTHETIC)\MENTHOL
     Indication: NECK PAIN
     Dosage: UNK
  12. IBUPROFEN. [Concomitant]
     Active Substance: IBUPROFEN
     Indication: NECK PAIN
     Dosage: 1000 MG, UNK
     Dates: start: 201602
  13. GABAPENTIN. [Concomitant]
     Active Substance: GABAPENTIN
     Dosage: 1 CAPSULE FOUR TIMES A DAY
     Route: 048
  14. LANTUS [Concomitant]
     Active Substance: INSULIN GLARGINE
     Dosage: 10 UNITS BID
     Route: 058

REACTIONS (26)
  - Drug hypersensitivity [Unknown]
  - Fatigue [Unknown]
  - Paranasal sinus discomfort [Unknown]
  - Depressed mood [Unknown]
  - Product use in unapproved indication [Unknown]
  - Low density lipoprotein increased [Unknown]
  - Tachycardia [Recovered/Resolved]
  - Diabetes mellitus inadequate control [Unknown]
  - Adverse event [Unknown]
  - Candida infection [Recovering/Resolving]
  - Drug intolerance [Unknown]
  - Back pain [Unknown]
  - Nausea [Unknown]
  - Hepatic steatosis [Unknown]
  - Stress [Unknown]
  - Rash [Unknown]
  - Pain [Unknown]
  - Blood glucose increased [Unknown]
  - Flushing [Recovered/Resolved]
  - Anxiety [Unknown]
  - Essential hypertension [Unknown]
  - Lymphadenopathy [Unknown]
  - Temperature intolerance [Unknown]
  - Skin mass [Unknown]
  - Glycosylated haemoglobin increased [Unknown]
  - Blood urea nitrogen/creatinine ratio increased [Unknown]

NARRATIVE: CASE EVENT DATE: 201602
